FAERS Safety Report 7476365-3 (Version None)
Quarter: 2011Q2

REPORT INFORMATION
  Report Type: 
  Country: None (occurrence: None)
  Receive Date: 20110512
  Receipt Date: 20110503
  Transmission Date: 20111010
  Serious: Yes (Other)
  Sender: FDA-Public Use
  Company Number: A0925582A

PATIENT
  Age: 55 Year
  Sex: Female

DRUGS (14)
  1. XELODA [Suspect]
     Indication: BREAST CANCER
  2. ACIPHEX [Concomitant]
  3. HYDROCODONE BITARTRATE [Concomitant]
  4. TYKERB [Suspect]
     Indication: BREAST CANCER
     Dosage: 5TAB AT NIGHT
     Route: 048
     Dates: start: 20090101
  5. HERCEPTIN [Concomitant]
  6. FISH OIL [Concomitant]
  7. CALCIUM [Concomitant]
  8. LORAZEPAM [Concomitant]
  9. VITAMIN TAB [Concomitant]
  10. UNSPECIFIED MEDICATION [Concomitant]
  11. MULTI-VITAMIN [Concomitant]
  12. NEXIUM [Concomitant]
  13. UNSPECIFIED MEDICATION [Concomitant]
  14. SERTRALINE HYDROCHLORIDE [Concomitant]

REACTIONS (13)
  - PRURITUS [None]
  - CONSTIPATION [None]
  - HYPERAESTHESIA [None]
  - INGROWING NAIL [None]
  - NAIL DISORDER [None]
  - PALMAR-PLANTAR ERYTHRODYSAESTHESIA SYNDROME [None]
  - ACNE [None]
  - DIARRHOEA [None]
  - NAIL INFECTION [None]
  - RASH [None]
  - ONYCHOCLASIS [None]
  - FATIGUE [None]
  - RED BLOOD CELL COUNT DECREASED [None]
